FAERS Safety Report 20644249 (Version 1)
Quarter: 2022Q1

REPORT INFORMATION
  Report Type: Spontaneous
  Country: ES (occurrence: ES)
  Receive Date: 20220328
  Receipt Date: 20220328
  Transmission Date: 20220423
  Serious: Yes (Life-Threatening)
  Sender: FDA-Public Use
  Company Number: None

PATIENT
  Age: 59 Year
  Sex: Female
  Weight: 79 kg

DRUGS (1)
  1. VARENICLINE TARTRATE [Suspect]
     Active Substance: VARENICLINE TARTRATE
     Indication: Smoking cessation therapy
     Dosage: 1 DF, 1X/DAY (USUAL)
     Route: 048
     Dates: start: 20200720, end: 20201008

REACTIONS (1)
  - Fibrosarcoma [Not Recovered/Not Resolved]

NARRATIVE: CASE EVENT DATE: 20201103
